FAERS Safety Report 8883417 (Version 1)
Quarter: 2012Q4

REPORT INFORMATION
  Report Type: 
  Country: US (occurrence: US)
  Receive Date: 20121102
  Receipt Date: 20121102
  Transmission Date: 20130627
  Serious: Yes (Hospitalization, Disabling, Other)
  Sender: FDA-Public Use
  Company Number: US-009507513-0607USA01889

PATIENT

DRUGS (11)
  1. FOSAMAX [Suspect]
     Indication: OSTEOPOROSIS
     Dosage: 10 mg, qd
     Route: 048
     Dates: start: 20000727, end: 20010517
  2. FOSAMAX [Suspect]
     Dosage: 70 mg, QW
     Route: 048
     Dates: start: 20010518, end: 200604
  3. ENBREL [Concomitant]
     Indication: PRODUCT USED FOR UNKNOWN INDICATION
     Dosage: 50 mg, QW
  4. ARAVA [Concomitant]
     Indication: PRODUCT USED FOR UNKNOWN INDICATION
     Dosage: 20 mg, qd
  5. METICORTEN [Concomitant]
     Indication: PRODUCT USED FOR UNKNOWN INDICATION
     Dosage: 7.5 mg, qd
     Dates: start: 1999, end: 200601
  6. MK-9039 [Concomitant]
     Indication: PRODUCT USED FOR UNKNOWN INDICATION
     Dosage: 1 mg, qd
  7. DIOVAN HCT [Concomitant]
     Indication: PRODUCT USED FOR UNKNOWN INDICATION
     Dosage: 80-12.5
  8. MK-9384 [Concomitant]
     Indication: PRODUCT USED FOR UNKNOWN INDICATION
     Dosage: UNK UNK, qd
  9. TYLENOL [Concomitant]
     Indication: PRODUCT USED FOR UNKNOWN INDICATION
     Dosage: 1-2
     Route: 048
  10. MK-9278 [Concomitant]
     Indication: PRODUCT USED FOR UNKNOWN INDICATION
     Dosage: 1 DF, qd
     Route: 048
  11. CALCIUM (UNSPECIFIED) (+) VITAMIN D (UNSPECIFIED) [Concomitant]
     Indication: PRODUCT USED FOR UNKNOWN INDICATION
     Dosage: 1200 mg, qd
     Route: 048

REACTIONS (31)
  - Osteonecrosis of jaw [Recovered/Resolved]
  - Osteomyelitis [Recovered/Resolved]
  - Depression [Unknown]
  - Anxiety [Unknown]
  - Diverticulitis [Unknown]
  - Haemorrhoids [Unknown]
  - Renal failure acute [Recovering/Resolving]
  - Anaemia [Unknown]
  - Syncope [Unknown]
  - Hyperglycaemia [Unknown]
  - Prostatic specific antigen increased [Unknown]
  - Tachycardia [Unknown]
  - Dyspnoea [Unknown]
  - Vertigo [Unknown]
  - Fatigue [Unknown]
  - Dyspepsia [Unknown]
  - Dysphagia [Unknown]
  - Arthralgia [Unknown]
  - Arthralgia [Unknown]
  - Iron deficiency [Unknown]
  - Urinary retention postoperative [Unknown]
  - Urinary tract infection [Unknown]
  - Biopsy prostate [Unknown]
  - Corneal abrasion [Unknown]
  - Medical device removal [Unknown]
  - Jaw operation [Unknown]
  - Device failure [Unknown]
  - Atrophy [Unknown]
  - Jaw operation [Unknown]
  - Vestibuloplasty [Unknown]
  - Bone graft [Unknown]
